FAERS Safety Report 11137374 (Version 1)
Quarter: 2015Q2

REPORT INFORMATION
  Report Type: Spontaneous
  Country: US (occurrence: US)
  Receive Date: 20150526
  Receipt Date: 20150526
  Transmission Date: 20150821
  Serious: No
  Sender: FDA-Public Use
  Company Number: US-MYLANLABS-2014S1010659

PATIENT
  Sex: Male

DRUGS (5)
  1. TAMSULOSIN [Suspect]
     Active Substance: TAMSULOSIN
     Dosage: 0.8 MG,QD
     Route: 048
     Dates: start: 201404, end: 201404
  2. PROBIOTIC CAPSULES [Suspect]
     Active Substance: PROBIOTICS NOS
     Dosage: UNK UNK,QD
     Route: 048
     Dates: start: 201403
  3. HYOSCYAMINE [Concomitant]
     Active Substance: HYOSCYAMINE
     Dosage: UNK
     Route: 048
  4. TAMSULOSIN [Suspect]
     Active Substance: TAMSULOSIN
     Indication: BENIGN PROSTATIC HYPERPLASIA
     Dosage: 0.4 MG,QD
     Route: 048
     Dates: start: 201403, end: 201404
  5. TAMSULOSIN [Suspect]
     Active Substance: TAMSULOSIN
     Dosage: .4 MG,QD
     Route: 048
     Dates: start: 201404

REACTIONS (6)
  - Drug effect decreased [Not Recovered/Not Resolved]
  - Ejaculation disorder [Not Recovered/Not Resolved]
  - Abdominal pain upper [Not Recovered/Not Resolved]
  - Micturition urgency [Not Recovered/Not Resolved]
  - Libido decreased [Not Recovered/Not Resolved]
  - Abdominal discomfort [Not Recovered/Not Resolved]

NARRATIVE: CASE EVENT DATE: 201403
